FAERS Safety Report 7430974-6 (Version None)
Quarter: 2011Q2

REPORT INFORMATION
  Report Type: 
  Country: None (occurrence: None)
  Receive Date: 20110421
  Receipt Date: 20110420
  Transmission Date: 20111010
  Serious: Yes (Hospitalization)
  Sender: FDA-Public Use
  Company Number: CA-PFIZER INC-2010140120

PATIENT
  Age: 62 Year
  Sex: Male
  Weight: 78.458 kg

DRUGS (14)
  1. VALPROATE SODIUM [Suspect]
     Dosage: UNK
     Dates: start: 20101018
  2. ATACAND [Concomitant]
     Dosage: UNK
     Route: 048
     Dates: start: 20101022
  3. RISPERDAL [Concomitant]
     Dosage: UNK
     Route: 048
     Dates: start: 20101120
  4. DILANTIN [Suspect]
     Dosage: UNK
     Dates: start: 20101014, end: 20101018
  5. SENNA [Concomitant]
     Dosage: UNK
     Route: 048
     Dates: start: 20101022
  6. CLOBAZAM [Concomitant]
     Dosage: UNK
     Route: 048
     Dates: start: 20101023
  7. BLINDED PF-04360365 [Suspect]
     Indication: DEMENTIA ALZHEIMER'S TYPE
     Dosage: EVERY 60 DAYS
     Route: 042
     Dates: start: 20090119, end: 20100719
  8. BLINDED PLACEBO [Suspect]
     Indication: DEMENTIA ALZHEIMER'S TYPE
     Dosage: EVERY 60 DAYS
     Route: 042
     Dates: start: 20090119, end: 20100719
  9. MEMANTINE [Concomitant]
     Dosage: UNK
     Route: 048
     Dates: start: 20100520
  10. COLACE [Concomitant]
     Dosage: UNK
     Route: 048
     Dates: start: 20101022
  11. BLINDED NO SUBJECT DRUG [Suspect]
     Indication: DEMENTIA ALZHEIMER'S TYPE
     Dosage: EVERY 60 DAYS
     Route: 042
     Dates: start: 20090119, end: 20100719
  12. FLOMAX [Concomitant]
     Dosage: UNK
     Route: 048
     Dates: start: 20100826
  13. ZOLOFT [Concomitant]
     Dosage: UNK
     Route: 048
     Dates: start: 20100921
  14. GALANTAMINE HYDROBROMIDE [Concomitant]
     Dosage: UNK
     Route: 048
     Dates: start: 20101214

REACTIONS (1)
  - DELIRIUM [None]
